FAERS Safety Report 6782995-4 (Version None)
Quarter: 2010Q2

REPORT INFORMATION
  Report Type: 
  Country: None (occurrence: None)
  Receive Date: 20100622
  Receipt Date: 20100611
  Transmission Date: 20101027
  Serious: Yes (Other)
  Sender: FDA-Public Use
  Company Number: US-JNJFOC-20100504231

PATIENT
  Age: 5 Year
  Sex: Female
  Weight: 21.77 kg

DRUGS (4)
  1. CHILDREN'S TYLENOL AND FLU BUBBLEGUM [Suspect]
     Route: 048
  2. CHILDREN'S TYLENOL AND FLU BUBBLEGUM [Suspect]
     Indication: PYREXIA
     Route: 048
  3. ZITHROMAX [Concomitant]
     Route: 048
  4. PREVACID [Concomitant]
     Indication: GASTROOESOPHAGEAL REFLUX DISEASE
     Route: 048

REACTIONS (5)
  - DIARRHOEA [None]
  - HAEMATOCHEZIA [None]
  - PRODUCT QUALITY ISSUE [None]
  - VOMITING [None]
  - WEIGHT DECREASED [None]
